FAERS Safety Report 4478513-6 (Version None)
Quarter: 2004Q4

REPORT INFORMATION
  Report Type: 
  Country: None (occurrence: None)
  Receive Date: 20041019
  Receipt Date: 20041011
  Transmission Date: 20050328
  Serious: Yes (Hospitalization)
  Sender: FDA-Public Use
  Company Number: PHRM2004FR03093

PATIENT
  Age: 51 Year
  Sex: Male

DRUGS (8)
  1. VOLTAREN [Suspect]
     Dosage: 150 MG/DAY
     Route: 048
     Dates: end: 20040402
  2. VERAPAMIL [Suspect]
     Dosage: 240 MG/DAY
     Route: 048
  3. AUGMENTIN '125' [Suspect]
     Indication: BRONCHITIS ACUTE
     Route: 048
     Dates: start: 20040301
  4. CIFLOX [Suspect]
     Indication: BRONCHITIS ACUTE
     Route: 048
     Dates: start: 20040301
  5. EUPANTOL #AT [Suspect]
     Dosage: 20 MG/DAY
     Route: 048
     Dates: end: 20040402
  6. NICARDIPINE HCL [Concomitant]
  7. COLCHICINE [Concomitant]
     Indication: GOUTY ARTHRITIS
     Route: 048
  8. TAVANIC [Suspect]

REACTIONS (19)
  - ALANINE AMINOTRANSFERASE INCREASED [None]
  - ASPARTATE AMINOTRANSFERASE INCREASED [None]
  - BILIRUBIN CONJUGATED INCREASED [None]
  - BLOOD ALKALINE PHOSPHATASE INCREASED [None]
  - BLOOD BILIRUBIN INCREASED [None]
  - BLOOD CREATINE PHOSPHOKINASE INCREASED [None]
  - BLOOD CREATININE INCREASED [None]
  - BLOOD LACTATE DEHYDROGENASE INCREASED [None]
  - CHLAMYDIA SEROLOGY POSITIVE [None]
  - CHOLESTASIS [None]
  - CHROMATURIA [None]
  - DRUG INEFFECTIVE [None]
  - FAECES DISCOLOURED [None]
  - HEPATITIS [None]
  - MYCOPLASMA SEROLOGY POSITIVE [None]
  - MYOGLOBIN BLOOD INCREASED [None]
  - OCULAR ICTERUS [None]
  - PNEUMONIA MYCOPLASMAL [None]
  - RHABDOMYOLYSIS [None]
